FAERS Safety Report 9246773 (Version 5)
Quarter: 2015Q1

REPORT INFORMATION
  Report Type: Spontaneous
  Country: US (occurrence: US)
  Receive Date: 20130422
  Receipt Date: 20150305
  Transmission Date: 20150721
  Serious: Yes (Disabling)
  Sender: FDA-Public Use
  Company Number: US-009507513-1304USA010165

PATIENT
  Sex: Male
  Weight: 83.45 kg

DRUGS (1)
  1. PROPECIA [Suspect]
     Active Substance: FINASTERIDE
     Indication: ALOPECIA
     Dosage: 1 MG, QD
     Route: 048
     Dates: start: 200401, end: 20110830

REACTIONS (23)
  - Muscular weakness [Unknown]
  - Penis injury [Unknown]
  - Muscle atrophy [Unknown]
  - Stress [Unknown]
  - Arthralgia [Unknown]
  - Depression [Not Recovered/Not Resolved]
  - Ejaculation disorder [Unknown]
  - Loss of libido [Unknown]
  - Rotator cuff syndrome [Not Recovered/Not Resolved]
  - Hormone level abnormal [Unknown]
  - Brain injury [Unknown]
  - Testicular disorder [Unknown]
  - Semen volume decreased [Unknown]
  - Testicular pain [Unknown]
  - Erectile dysfunction [Unknown]
  - Weight decreased [Unknown]
  - Gynaecomastia [Unknown]
  - Breast enlargement [Unknown]
  - Cognitive disorder [Not Recovered/Not Resolved]
  - Penile size reduced [Unknown]
  - Groin pain [Unknown]
  - Sexual dysfunction [Not Recovered/Not Resolved]
  - Anxiety [Not Recovered/Not Resolved]

NARRATIVE: CASE EVENT DATE: 2005
